FAERS Safety Report 4311384-7 (Version None)
Quarter: 2004Q1

REPORT INFORMATION
  Report Type: 
  Country: None (occurrence: None)
  Receive Date: 20040302
  Receipt Date: 20030404
  Transmission Date: 20041129
  Serious: Yes (Life-Threatening, Hospitalization)
  Sender: FDA-Public Use
  Company Number: BDI-004962

PATIENT
  Age: 76 Year
  Sex: Male
  Weight: 86 kg

DRUGS (7)
  1. ISOVUE-370 [Suspect]
     Indication: ABDOMINAL PAIN
     Dosage: 75 ML ONCE IV
     Dates: start: 20030317, end: 20030317
  2. ISOVUE-370 [Suspect]
     Indication: BENIGN PROSTATIC HYPERPLASIA
     Dosage: 75 ML ONCE IV
     Dates: start: 20030317, end: 20030317
  3. ISOVUE-370 [Suspect]
     Indication: COMPUTERISED TOMOGRAM
     Dosage: 75 ML ONCE IV
     Dates: start: 20030317, end: 20030317
  4. LIPITOR [Concomitant]
  5. COREG [Concomitant]
  6. VASOTEC [Concomitant]
  7. DETROL [Concomitant]

REACTIONS (4)
  - ANAPHYLACTOID REACTION [None]
  - CONFUSIONAL STATE [None]
  - FACIAL PALSY [None]
  - HEADACHE [None]
